FAERS Safety Report 12505279 (Version 1)
Quarter: 2016Q2

REPORT INFORMATION
  Report Type: Spontaneous
  Country: US (occurrence: US)
  Receive Date: 20160628
  Receipt Date: 20160628
  Transmission Date: 20160815
  Serious: No
  Sender: FDA-Public Use
  Company Number: US-BAYER-2016-125005

PATIENT
  Age: 79 Year
  Sex: Male
  Weight: 70.3 kg

DRUGS (2)
  1. MIRALAX [Suspect]
     Active Substance: POLYETHYLENE GLYCOL 3350
     Indication: CONSTIPATION
     Dosage: 1 DF, UNK
     Route: 048
     Dates: start: 2015
  2. PANTOPRAZOLE [Concomitant]
     Active Substance: PANTOPRAZOLE SODIUM

REACTIONS (2)
  - Product use issue [None]
  - Drug ineffective [None]

NARRATIVE: CASE EVENT DATE: 2015
